FAERS Safety Report 20650297 (Version 1)
Quarter: 2022Q1

REPORT INFORMATION
  Report Type: Spontaneous
  Country: NO (occurrence: NO)
  Receive Date: 20220329
  Receipt Date: 20220329
  Transmission Date: 20220424
  Serious: Yes (Hospitalization)
  Sender: FDA-Public Use
  Company Number: None

PATIENT
  Age: 49 Year
  Sex: Male

DRUGS (1)
  1. DOSTINEX [Suspect]
     Active Substance: CABERGOLINE
     Indication: Prolactin-producing pituitary tumour
     Dosage: 0.5 MG, 2X/WEEK
     Route: 048
     Dates: start: 2012, end: 20210928

REACTIONS (4)
  - Suicidal ideation [Recovering/Resolving]
  - Delirium [Recovering/Resolving]
  - Psychotic disorder [Recovering/Resolving]
  - Psychotic symptom [Recovering/Resolving]

NARRATIVE: CASE EVENT DATE: 20210901
